FAERS Safety Report 19634609 (Version 1)
Quarter: 2021Q3

REPORT INFORMATION
  Report Type: Spontaneous
  Country: US (occurrence: US)
  Receive Date: 20210730
  Receipt Date: 20210730
  Transmission Date: 20211014
  Serious: Yes (Death)
  Sender: FDA-Public Use
  Company Number: None

PATIENT
  Sex: Female

DRUGS (2)
  1. CAPECITABINE. [Suspect]
     Active Substance: CAPECITABINE
     Indication: CERVIX CARCINOMA
     Route: 048
     Dates: start: 20210510, end: 20210721
  2. CAPECITABINE. [Suspect]
     Active Substance: CAPECITABINE
     Indication: CERVIX CARCINOMA
     Route: 048
     Dates: start: 20210510, end: 20210721

REACTIONS (1)
  - Death [None]
